FAERS Safety Report 5942170-X (Version None)
Quarter: 2008Q4

REPORT INFORMATION
  Report Type: 
  Country: None (occurrence: None)
  Receive Date: 20081031
  Receipt Date: 20081023
  Transmission Date: 20090506
  Serious: Yes (Hospitalization)
  Sender: FDA-Public Use
  Company Number: 2008SP021746

PATIENT
  Age: 64 Year
  Sex: Female
  Weight: 66.9 kg

DRUGS (8)
  1. TEMOZOLOMIDE [Suspect]
     Indication: GLIOBLASTOMA MULTIFORME
     Dosage: PO; 3500 MG;QM;PO
     Route: 048
     Dates: start: 20070402
  2. TEMOZOLOMIDE [Suspect]
     Indication: GLIOBLASTOMA MULTIFORME
     Dosage: PO; 3500 MG;QM;PO
     Route: 048
     Dates: start: 20080820
  3. CELECOXIB [Suspect]
     Indication: GLIOBLASTOMA MULTIFORME
     Dosage: 18400 MG;QM
     Dates: start: 20070402
  4. CELECOXIB [Suspect]
     Indication: GLIOBLASTOMA MULTIFORME
     Dosage: 18400 MG;QM
     Dates: start: 20080820
  5. ISOTRETINOIN [Suspect]
     Indication: GLIOBLASTOMA MULTIFORME
     Dosage: 2520 MG;QM;PO
     Route: 048
     Dates: start: 20070402
  6. ISOTRETINOIN [Suspect]
     Indication: GLIOBLASTOMA MULTIFORME
     Dosage: 2520 MG;QM;PO
     Route: 048
     Dates: start: 20080820
  7. THALIDOMIDE [Suspect]
     Indication: GLIOBLASTOMA MULTIFORME
     Dosage: PO; 2200 MG;QM;PO
     Route: 048
     Dates: start: 20070402
  8. THALIDOMIDE [Suspect]
     Indication: GLIOBLASTOMA MULTIFORME
     Dosage: PO; 2200 MG;QM;PO
     Route: 048
     Dates: start: 20080820

REACTIONS (2)
  - OEDEMA PERIPHERAL [None]
  - PNEUMONIA [None]
